FAERS Safety Report 6686504-X (Version None)
Quarter: 2010Q2

REPORT INFORMATION
  Report Type: 
  Country: None (occurrence: None)
  Receive Date: 20100414
  Receipt Date: 20100331
  Transmission Date: 20101027
  Serious: Yes (Hospitalization)
  Sender: FDA-Public Use
  Company Number: 100401-0000301

PATIENT
  Age: 3 Year
  Sex: Male
  Weight: 16.7 kg

DRUGS (8)
  1. SABRIL [Suspect]
     Indication: INFANTILE SPASMS
     Dosage: 750 MG; BID;
     Dates: start: 20091001, end: 20100201
  2. DEPAKOTE [Concomitant]
  3. TRANXENE [Concomitant]
  4. OMEPRAZOLE [Concomitant]
  5. ALBUTEROL [Concomitant]
  6. TOPAMAX [Concomitant]
  7. MIRALAX [Concomitant]
  8. MELATONIN [Concomitant]

REACTIONS (2)
  - INCREASED UPPER AIRWAY SECRETION [None]
  - INFECTION [None]
